FAERS Safety Report 9068571 (Version 1)
Quarter: 2013Q1

REPORT INFORMATION
  Report Type: Spontaneous
  Country: IT (occurrence: IT)
  Receive Date: 20130206
  Receipt Date: 20130206
  Transmission Date: 20140127
  Serious: Yes (Death, Hospitalization)
  Sender: FDA-Public Use
  Company Number: IT-ELI_LILLY_AND_COMPANY-IT201302000708

PATIENT
  Age: 69 None
  Sex: Male

DRUGS (5)
  1. GEMZAR [Suspect]
     Indication: LUNG ADENOCARCINOMA
     Dosage: 1385 MG, UNK
     Route: 042
     Dates: start: 20120607, end: 20120607
  2. DEXAMETHASONE SODIUM PHOSPHATE [Concomitant]
     Indication: PROPHYLAXIS OF NAUSEA AND VOMITING
     Dosage: 128 DF, UNK
     Route: 048
     Dates: start: 20120420, end: 20120613
  3. DEXAMETHASONE SODIUM PHOSPHATE [Concomitant]
     Dosage: 20 MG, UNK
     Route: 042
     Dates: start: 20120607, end: 20120607
  4. CISPLATIN [Concomitant]
     Indication: LUNG ADENOCARCINOMA
     Dosage: 55.38 MG, UNK
     Dates: start: 20120607, end: 20120607
  5. TAPENTADOL [Concomitant]
     Indication: PAIN
     Dosage: 100 MG, UNK
     Dates: start: 20120605, end: 20120613

REACTIONS (3)
  - Bronchopneumonia [Fatal]
  - Thrombocytopenia [Fatal]
  - Hyperpyrexia [Fatal]
